FAERS Safety Report 10967461 (Version 1)
Quarter: 2015Q1

REPORT INFORMATION
  Report Type: Spontaneous
  Country: US (occurrence: US)
  Receive Date: 20150330
  Receipt Date: 20150330
  Transmission Date: 20150721
  Serious: Yes (Other)
  Sender: FDA-Public Use
  Company Number: US-PFIZER INC-2015105881

PATIENT
  Age: 64 Year
  Sex: Female
  Weight: 61.22 kg

DRUGS (4)
  1. MAGNESIUM [Concomitant]
     Active Substance: MAGNESIUM
     Indication: ANORECTAL OPERATION
     Dosage: UNK, DAILY
  2. POTASSIUM [Concomitant]
     Active Substance: POTASSIUM
     Indication: ANORECTAL OPERATION
     Dosage: UNK, DAILY
  3. LYRICA [Suspect]
     Active Substance: PREGABALIN
     Dosage: UNK
  4. NORCO [Concomitant]
     Active Substance: ACETAMINOPHEN\HYDROCODONE BITARTRATE
     Dosage: ^HYDROCODONE/APAP^ 7.5/325 MG AND THE 325 MG IN IT IS ^ACETAMINOPHEN^, 4X/DAY

REACTIONS (2)
  - Limb discomfort [Unknown]
  - Pain [Unknown]

NARRATIVE: CASE EVENT DATE: 20150319
